FAERS Safety Report 23268074 (Version 2)
Quarter: 2024Q1

REPORT INFORMATION
  Report Type: Spontaneous
  Country: FR (occurrence: FR)
  Receive Date: 20231206
  Receipt Date: 20240202
  Transmission Date: 20240409
  Serious: Yes (Hospitalization, Other)
  Sender: FDA-Public Use
  Company Number: FR-AMERICAN REGENT INC-2023002782

PATIENT
  Age: 34 Year
  Sex: Female
  Weight: 61.4 kg

DRUGS (2)
  1. FERINJECT [Suspect]
     Active Substance: FERRIC CARBOXYMALTOSE
     Indication: Iron deficiency anaemia
     Dosage: 1 GRAM, ONE TIME (FIRST AND ONLY ADMINISTRATION)
     Dates: start: 20231019, end: 20231019
  2. FERINJECT [Suspect]
     Active Substance: FERRIC CARBOXYMALTOSE
     Indication: Drug intolerance

REACTIONS (5)
  - Loose tooth [Recovering/Resolving]
  - Serum ferritin increased [Unknown]
  - Influenza like illness [Recovering/Resolving]
  - Hypophosphataemia [Recovering/Resolving]
  - Arthralgia [Recovering/Resolving]

NARRATIVE: CASE EVENT DATE: 20231020
